FAERS Safety Report 6257158-1 (Version None)
Quarter: 2009Q3

REPORT INFORMATION
  Report Type: 
  Country: None (occurrence: None)
  Receive Date: 20090706
  Receipt Date: 20090623
  Transmission Date: 20100115
  Serious: Yes (Other)
  Sender: FDA-Public Use
  Company Number: BR-BAYER-200918144LA

PATIENT
  Age: 26 Year
  Sex: Female

DRUGS (3)
  1. BETAFERON [Suspect]
     Indication: MULTIPLE SCLEROSIS
     Dosage: TOTAL DAILY DOSE: 8 MIU
     Route: 058
     Dates: start: 20090101
  2. BETAFERON [Suspect]
     Dosage: TOTAL DAILY DOSE: 8 MIU
     Route: 058
     Dates: start: 20090101, end: 20090101
  3. CLONAZEPAM [Concomitant]
     Indication: INSOMNIA
     Dosage: 1 TABLET EVERY NIGHT
     Route: 048
     Dates: start: 20090101

REACTIONS (6)
  - BEDRIDDEN [None]
  - DEPRESSION [None]
  - FALL [None]
  - MULTIPLE SCLEROSIS [None]
  - MUSCULAR WEAKNESS [None]
  - MUSCULOSKELETAL CHEST PAIN [None]
